FAERS Safety Report 6744451-9 (Version None)
Quarter: 2010Q2

REPORT INFORMATION
  Report Type: 
  Country: None (occurrence: None)
  Receive Date: 20100527
  Receipt Date: 20100517
  Transmission Date: 20101027
  Serious: Yes (Other)
  Sender: FDA-Public Use
  Company Number: US-PFIZER INC-2010062299

PATIENT
  Sex: Female
  Weight: 90.703 kg

DRUGS (4)
  1. LIPITOR [Suspect]
     Indication: BLOOD CHOLESTEROL INCREASED
     Dosage: 20 MG, 1X/DAY
     Route: 048
     Dates: start: 20060101
  2. ACTOS [Suspect]
     Dosage: UNK
  3. ACETYLSALICYLIC ACID [Concomitant]
     Indication: HYPERTENSION
     Dosage: 81 MG, 1X/DAY
  4. FISH OIL [Concomitant]
     Dosage: 1 DF, 1X/DAY

REACTIONS (2)
  - DIABETES MELLITUS [None]
  - HEPATOMEGALY [None]
